FAERS Safety Report 8470610-3 (Version None)
Quarter: 2012Q2

REPORT INFORMATION
  Report Type: 
  Country: None (occurrence: None)
  Receive Date: 20120627
  Receipt Date: 20120623
  Transmission Date: 20120825
  Serious: Yes (Other)
  Sender: FDA-Public Use
  Company Number: PHHY2012IT054458

PATIENT

DRUGS (5)
  1. CYCLOSPORINE [Suspect]
     Dosage: 5 MG/KG UNTIL DAY +365
     Route: 048
  2. CYCLOSPORINE [Suspect]
     Indication: PROPHYLAXIS AGAINST GRAFT VERSUS HOST DISEASE
     Dosage: 1.5-3 MG/KG/DAY I.V. FROM DAY L-7 TO +28
     Route: 042
  3. METHOTREXATE [Concomitant]
     Dosage: 15 MG/SQM ON DAY +1 AND 10 MG/SQM ON DAY +3, +6 AND +11
  4. MYCOPHENOLATE MOFETIL [Concomitant]
     Dosage: 1 G/D FROM DAY +7 TO +100
  5. BASILIXIMAB [Suspect]

REACTIONS (1)
  - BONE MARROW FAILURE [None]
